FAERS Safety Report 5649351-3 (Version None)
Quarter: 2008Q1

REPORT INFORMATION
  Report Type: 
  Country: None (occurrence: None)
  Receive Date: 20080304
  Receipt Date: 20080229
  Transmission Date: 20080703
  Serious: Yes (Hospitalization)
  Sender: FDA-Public Use
  Company Number: AU-WYE-G01177208

PATIENT
  Sex: Female

DRUGS (1)
  1. EFFEXOR XR [Suspect]
     Dosage: UNKNOWN
     Route: 048
     Dates: end: 20070101

REACTIONS (3)
  - AGITATION [None]
  - NONSPECIFIC REACTION [None]
  - PSYCHOMOTOR HYPERACTIVITY [None]
